FAERS Safety Report 8242576-2 (Version None)
Quarter: 2012Q1

REPORT INFORMATION
  Report Type: 
  Country: None (occurrence: None)
  Receive Date: 20120329
  Receipt Date: 20120320
  Transmission Date: 20120608
  Serious: Yes (Hospitalization, Other)
  Sender: FDA-Public Use
  Company Number: PHEH2012US003194

PATIENT
  Sex: Female

DRUGS (20)
  1. PLAVIX [Concomitant]
     Dosage: 75 MG EVERYDAY
     Route: 048
     Dates: start: 20110908
  2. CEFTIN [Concomitant]
     Dosage: 1 MG, EVERYDAY
  3. BENADRYL [Concomitant]
     Dosage: 25 MG, UNK
     Route: 048
     Dates: start: 20070604
  4. NEORAL [Suspect]
     Dosage: 75 MG, BID
     Route: 048
     Dates: start: 20110913
  5. NEORAL [Suspect]
     Indication: COMPLICATIONS OF TRANSPLANTED KIDNEY
     Dosage: 25 MG, TID
     Route: 048
     Dates: start: 20110314
  6. BETA BLOCKING AGENTS [Concomitant]
     Indication: HYPERTENSION
     Dosage: UNK UKN, UNK
  7. METOPROLOL SUCCINATE [Concomitant]
     Dosage: 200 MG, UNK
     Route: 048
     Dates: start: 20120123
  8. SULFAMETHOXAZOLE + TRIMETHOPRIM [Concomitant]
     Dosage: 1 DF, (400-81 MG)
     Route: 048
  9. METOPROLOL SUCCINATE [Concomitant]
     Dosage: 100 MG EVERYDAY
  10. ASPIRIN [Concomitant]
     Dosage: 81 MG, EVERYDAY
     Route: 048
     Dates: start: 19980812
  11. CRESTOR [Concomitant]
     Dosage: 10 MG, ONCE/SINGLE
     Route: 048
     Dates: start: 20110908
  12. MULTI-VITAMIN [Concomitant]
     Dosage: UNK UKN, UNK
     Route: 048
     Dates: start: 20080204
  13. LEVOTHYROXINE SODIUM [Concomitant]
     Dosage: 0.75 MG, EVERYDAY
     Route: 048
     Dates: start: 20090629
  14. FUROSEMIDE [Concomitant]
     Dosage: 20 MG, UNK
     Route: 048
     Dates: start: 20090626
  15. PROMETHAZINE HCL [Concomitant]
     Dosage: 25 MG, ONCE/SINGLE (EVERY 12 HRS, PRN)
     Route: 048
  16. CYCLOSPORINE [Concomitant]
     Dosage: 75 MG, BID
  17. THYMOGLOBULIN [Concomitant]
     Dosage: UNK UKN, UNK
     Dates: start: 20060713
  18. PREDNISONE TAB [Concomitant]
     Dosage: 10 MG EVERYDAY
     Route: 048
     Dates: start: 20060713
  19. MYFORTIC [Concomitant]
     Dosage: 360 MG, BID
     Dates: start: 20110314
  20. AMLODIPINE BESYLATE [Concomitant]
     Indication: BLOOD PRESSURE
     Dosage: 5 MG, UNK
     Route: 048
     Dates: start: 20111206

REACTIONS (17)
  - BLOOD TRIGLYCERIDES INCREASED [None]
  - BLOOD CREATININE INCREASED [None]
  - BLOOD GLUCOSE INCREASED [None]
  - HEMIPARESIS [None]
  - OEDEMA PERIPHERAL [None]
  - CREATININE RENAL CLEARANCE DECREASED [None]
  - BLOOD THYROID STIMULATING HORMONE INCREASED [None]
  - HAEMATOCRIT DECREASED [None]
  - DYSARTHRIA [None]
  - BLOOD CHOLESTEROL INCREASED [None]
  - PROTEIN TOTAL INCREASED [None]
  - CEREBROVASCULAR ACCIDENT [None]
  - GLOMERULAR VASCULAR DISORDER [None]
  - JOINT SWELLING [None]
  - IMMUNOSUPPRESSANT DRUG LEVEL INCREASED [None]
  - BLOOD PARATHYROID HORMONE INCREASED [None]
  - BLOOD UREA INCREASED [None]
